FAERS Safety Report 24283289 (Version 2)
Quarter: 2024Q3

REPORT INFORMATION
  Report Type: Spontaneous
  Country: US (occurrence: US)
  Receive Date: 20240904
  Receipt Date: 20240913
  Transmission Date: 20241016
  Serious: No
  Sender: PURDUE
  Company Number: US-PURDUE PHARMA-USA-2024-0311764

PATIENT
  Sex: Female

DRUGS (13)
  1. OXYCODONE HYDROCHLORIDE [Interacting]
     Active Substance: OXYCODONE HYDROCHLORIDE
     Indication: Skull base tumour
     Dosage: UNK
     Route: 065
  2. OXYCODONE HYDROCHLORIDE [Interacting]
     Active Substance: OXYCODONE HYDROCHLORIDE
     Indication: Rib fracture
  3. OXYCODONE HYDROCHLORIDE [Interacting]
     Active Substance: OXYCODONE HYDROCHLORIDE
     Indication: Pain management
  4. HYDROMORPHONE HYDROCHLORIDE [Interacting]
     Active Substance: HYDROMORPHONE HYDROCHLORIDE
     Indication: Rib fracture
     Dosage: UNK
     Route: 065
  5. DILAUDID [Suspect]
     Active Substance: HYDROMORPHONE HYDROCHLORIDE
     Indication: Pain management
     Route: 048
  6. DILAUDID [Suspect]
     Active Substance: HYDROMORPHONE HYDROCHLORIDE
     Indication: Rib fracture
  7. METHADONE [Interacting]
     Active Substance: METHADONE HYDROCHLORIDE
     Indication: Skull base tumour
     Route: 065
  8. METHADONE [Interacting]
     Active Substance: METHADONE HYDROCHLORIDE
     Indication: Rib fracture
  9. METHADONE [Interacting]
     Active Substance: METHADONE HYDROCHLORIDE
     Indication: Pain management
  10. TORADOL [Interacting]
     Active Substance: KETOROLAC TROMETHAMINE
     Indication: Rib fracture
     Route: 065
  11. TUKYSA [Interacting]
     Active Substance: TUCATINIB
     Indication: Product used for unknown indication
     Dosage: 2 TABLET, BID
     Route: 048
  12. PROPRANOLOL [Suspect]
     Active Substance: PROPRANOLOL HYDROCHLORIDE
     Indication: Rib fracture
     Route: 065
  13. PROPRANOLOL [Suspect]
     Active Substance: PROPRANOLOL HYDROCHLORIDE
     Indication: Pain management

REACTIONS (2)
  - Product availability issue [Unknown]
  - Drug interaction [Unknown]
